FAERS Safety Report 8426560-1 (Version None)
Quarter: 2012Q2

REPORT INFORMATION
  Report Type: 
  Country: None (occurrence: None)
  Receive Date: 20120611
  Receipt Date: 20120531
  Transmission Date: 20120825
  Serious: Yes (Hospitalization)
  Sender: FDA-Public Use
  Company Number: US-VERTEX PHARMACEUTICALS INC.-AE-2012-007970

PATIENT
  Sex: Female

DRUGS (6)
  1. PEGASYS [Concomitant]
     Indication: HEPATITIS C
     Route: 058
     Dates: start: 20120106, end: 20120305
  2. INCIVEK [Suspect]
     Route: 048
     Dates: start: 20120520
  3. RIBASPHERE [Concomitant]
     Route: 048
     Dates: start: 20120520
  4. PEGASYS [Concomitant]
     Route: 058
     Dates: start: 20120520
  5. RIBASPHERE [Concomitant]
     Indication: HEPATITIS C
     Route: 048
     Dates: start: 20120106, end: 20120305
  6. INCIVEK [Suspect]
     Indication: HEPATITIS C
     Route: 048
     Dates: start: 20120106, end: 20120305

REACTIONS (2)
  - ANEURYSM [None]
  - HEADACHE [None]
